FAERS Safety Report 8255069-3 (Version None)
Quarter: 2012Q1

REPORT INFORMATION
  Report Type: 
  Country: None (occurrence: None)
  Receive Date: 20120328
  Receipt Date: 20120319
  Transmission Date: 20120608
  Serious: Yes (Hospitalization, Disabling, Other)
  Sender: FDA-Public Use
  Company Number: 2012MA003599

PATIENT
  Sex: Male
  Weight: 91.173 kg

DRUGS (11)
  1. METOCLOPRAMIDE [Suspect]
     Indication: IMPAIRED GASTRIC EMPTYING
     Dates: start: 19900101, end: 20000101
  2. METOCLOPRAMIDE [Suspect]
     Indication: GASTROOESOPHAGEAL REFLUX DISEASE
     Dates: start: 19900101, end: 20000101
  3. LOXITANE [Concomitant]
  4. COGENTIN [Concomitant]
  5. IMIPRAMINE [Concomitant]
  6. HALDOL [Concomitant]
  7. PROLIXIN [Concomitant]
  8. RISPERIDONE [Concomitant]
  9. BENDRYL [Concomitant]
  10. MELLARIL [Concomitant]
  11. ABILIFY [Concomitant]

REACTIONS (18)
  - BLUNTED AFFECT [None]
  - TANDEM GAIT TEST ABNORMAL [None]
  - EMOTIONAL DISORDER [None]
  - CYCLOTHYMIC DISORDER [None]
  - PARKINSON'S DISEASE [None]
  - ECONOMIC PROBLEM [None]
  - SCHIZOAFFECTIVE DISORDER [None]
  - PRESSURE OF SPEECH [None]
  - PARALYSIS [None]
  - MUSCULOSKELETAL STIFFNESS [None]
  - TANGENTIALITY [None]
  - TIC [None]
  - MICROGRAPHIA [None]
  - TARDIVE DYSKINESIA [None]
  - EXTRAPYRAMIDAL DISORDER [None]
  - SCHIZOPHRENIA, DISORGANISED TYPE [None]
  - GRANDIOSITY [None]
  - MOVEMENT DISORDER [None]
